FAERS Safety Report 7749034-X (Version None)
Quarter: 2011Q3

REPORT INFORMATION
  Report Type: 
  Country: None (occurrence: None)
  Receive Date: 20110914
  Receipt Date: 20110906
  Transmission Date: 20111222
  Serious: Yes (Other)
  Sender: FDA-Public Use
  Company Number: US-JNJFOC-20110603949

PATIENT
  Sex: Female

DRUGS (1)
  1. DOXORUBICIN HCL [Suspect]
     Indication: OVARIAN CANCER
     Route: 042
     Dates: start: 20101117, end: 20110627

REACTIONS (8)
  - NAUSEA [None]
  - BLOOD MAGNESIUM DECREASED [None]
  - ABNORMAL LOSS OF WEIGHT [None]
  - DIARRHOEA [None]
  - RENAL FAILURE [None]
  - THROMBOSIS [None]
  - HICCUPS [None]
  - DRUG INEFFECTIVE [None]
